FAERS Safety Report 7860644-1 (Version None)
Quarter: 2011Q4

REPORT INFORMATION
  Report Type: 
  Country: None (occurrence: None)
  Receive Date: 20111027
  Receipt Date: 20111012
  Transmission Date: 20120403
  Serious: Yes (Hospitalization, Other)
  Sender: FDA-Public Use
  Company Number: US-BAYER-2011-052457

PATIENT
  Age: 31 Year
  Sex: Female
  Weight: 116 kg

DRUGS (6)
  1. YAZ [Suspect]
     Indication: ACNE
     Dosage: UNK
     Dates: start: 20080401, end: 20090101
  2. SYNTHROID [Concomitant]
     Indication: HYPOTHYROIDISM
     Dosage: UNK
     Dates: start: 20000101
  3. LITHIUM CITRATE [Concomitant]
     Indication: BIPOLAR DISORDER
     Dosage: 300 MG, BID
     Dates: start: 20000101
  4. ALBUTEROL [Concomitant]
  5. METFORMIN HCL [Concomitant]
     Indication: DIABETES MELLITUS
     Dosage: 1000 MG, BID
     Dates: start: 20000101
  6. LANTUS [Concomitant]
     Indication: DIABETES MELLITUS
     Dosage: 18 UNITS QHS
     Dates: start: 20000101

REACTIONS (4)
  - CHOLECYSTITIS ACUTE [None]
  - BILIARY COLIC [None]
  - PAIN [None]
  - INJURY [None]
